FAERS Safety Report 25986352 (Version 2)
Quarter: 2025Q4

REPORT INFORMATION
  Report Type: Report from Study
  Country: CA (occurrence: CA)
  Receive Date: 20251101
  Receipt Date: 20251108
  Transmission Date: 20260117
  Serious: Yes (Other)
  Sender: TEVA
  Company Number: CA-TEVA-VS-3386930

PATIENT
  Age: 47 Year
  Sex: Female

DRUGS (3)
  1. AJOVY [Suspect]
     Active Substance: FREMANEZUMAB-VFRM
     Indication: Migraine prophylaxis
     Dosage: LAST ADMIN DATE: 2025-10-16
     Route: 058
     Dates: start: 20250916, end: 2025
  2. PROPRANOLOL [Concomitant]
     Active Substance: PROPRANOLOL HYDROCHLORIDE
     Indication: Product used for unknown indication
     Dosage: ACTIVE
     Route: 065
  3. GABAPENTIN [Concomitant]
     Active Substance: GABAPENTIN
     Indication: Product used for unknown indication
     Dosage: DISCONTINUED.
     Route: 065

REACTIONS (16)
  - Blindness [Unknown]
  - Peripheral swelling [Unknown]
  - Nasal congestion [Unknown]
  - Pain [Unknown]
  - Pruritus [Unknown]
  - Neck pain [Unknown]
  - Fatigue [Unknown]
  - Musculoskeletal stiffness [Unknown]
  - Vision blurred [Unknown]
  - Contusion [Unknown]
  - Sinusitis [Unknown]
  - Illness [Unknown]
  - Eye pain [Unknown]
  - Pain in jaw [Unknown]
  - Adverse event [Unknown]
  - Hypersensitivity [Unknown]

NARRATIVE: CASE EVENT DATE: 20250101
